FAERS Safety Report 6670077-1 (Version None)
Quarter: 2010Q2

REPORT INFORMATION
  Report Type: 
  Country: None (occurrence: None)
  Receive Date: 20100406
  Receipt Date: 20100212
  Transmission Date: 20101027
  Serious: No
  Sender: FDA-Public Use
  Company Number: US-ALLERGAN-1001963US

PATIENT
  Age: 29 Year
  Sex: Female

DRUGS (2)
  1. LATISSE [Suspect]
     Indication: GROWTH OF EYELASHES
     Dosage: 1 GTT, SINGLE
  2. VISINE                             /00256502/ [Concomitant]

REACTIONS (3)
  - EYE INFLAMMATION [None]
  - EYE IRRITATION [None]
  - EYE PRURITUS [None]
